FAERS Safety Report 21383058 (Version 1)
Quarter: 2022Q3

REPORT INFORMATION
  Report Type: Spontaneous
  Country: US (occurrence: US)
  Receive Date: 20220927
  Receipt Date: 20220927
  Transmission Date: 20221026
  Serious: No
  Sender: FDA-Public Use
  Company Number: US-SA-SAC20220922000299

PATIENT
  Age: 14 Year
  Sex: Male

DRUGS (6)
  1. DUPIXENT [Suspect]
     Active Substance: DUPILUMAB
     Indication: Dermatitis atopic
     Dosage: 200 MG, QOW
     Route: 058
     Dates: start: 20200721
  2. CLARITIN [Concomitant]
     Active Substance: LORATADINE
  3. LORATADINE [Concomitant]
     Active Substance: LORATADINE
  4. MOMETASONE [Concomitant]
     Active Substance: MOMETASONE
  5. METHYLPREDNISOLONE [Concomitant]
     Active Substance: METHYLPREDNISOLONE
  6. DENTA 5000 PLUS [Concomitant]
     Active Substance: SODIUM FLUORIDE
     Dosage: UNK (DENTA 5000 CRE PLUS)

REACTIONS (1)
  - Infection [Recovered/Resolved]
